FAERS Safety Report 9024306 (Version 1)
Quarter: 2013Q1

REPORT INFORMATION
  Report Type: Spontaneous
  Country: BR (occurrence: BR)
  Receive Date: 20130121
  Receipt Date: 20130121
  Transmission Date: 20140127
  Serious: Yes (Other)
  Sender: FDA-Public Use
  Company Number: PHHY2013BR004859

PATIENT
  Sex: Male

DRUGS (12)
  1. DIOVAN AMLO FIX [Suspect]
     Indication: HYPERTENSION
     Dosage: 1 DF, (160 VALS/ 5 MG AMLO) DAILY
     Route: 048
     Dates: start: 2008
  2. ANGIPRESS [Concomitant]
     Indication: BLOOD PRESSURE
     Dosage: 1 DF, DAILY
     Route: 048
  3. PLAGREL [Concomitant]
     Dosage: 1 DF, DAILY
     Route: 048
  4. NATRILIX SR [Concomitant]
     Indication: DIURETIC THERAPY
     Dosage: 1 DF, DAILY
     Route: 048
  5. DAFLON [Concomitant]
     Indication: CARDIOVASCULAR DISORDER
     Dosage: 1 DF, DAILY
     Route: 048
  6. FINASTERIDE [Concomitant]
     Indication: PROSTATIC DISORDER
     Dosage: 1 DF, DAILY
     Route: 048
  7. LIPIBLOCK [Concomitant]
     Dosage: 1 DF, DAILY
     Route: 048
  8. LIPTOR [Concomitant]
     Indication: BLOOD PRESSURE
     Dosage: 1 DF, DAILY
     Route: 048
  9. PRESSAT [Concomitant]
     Indication: BLOOD PRESSURE
     Dosage: 1 DF, DAILY
     Route: 048
  10. ACTOS [Concomitant]
     Indication: BLOOD GLUCOSE ABNORMAL
     Dosage: 1 DF, DAILY
     Route: 048
  11. DIAMICRON MR [Concomitant]
     Indication: BLOOD GLUCOSE ABNORMAL
     Dosage: 1 DF, DAILY
     Route: 048
  12. OLCADIL [Concomitant]
     Indication: SEDATION
     Dosage: 1 DF, PRN
     Route: 048

REACTIONS (1)
  - Aortic dissection [Recovered/Resolved]
